FAERS Safety Report 11201526 (Version 1)
Quarter: 2015Q2

REPORT INFORMATION
  Report Type: Spontaneous
  Country: US (occurrence: None)
  Receive Date: 20150603
  Receipt Date: 20150603
  Transmission Date: 20150821
  Serious: Yes (Other)
  Sender: FDA-Public Use
  Company Number: US-TORRENT-00000898

PATIENT
  Age: 69 Year
  Sex: Male

DRUGS (1)
  1. SILDENAFIL TABLET (SILDENAFIL) (20 MILLIGRAM(S)) (TPL) [Suspect]
     Active Substance: SILDENAFIL
     Indication: ERECTILE DYSFUNCTION
     Route: 048

REACTIONS (2)
  - Blindness unilateral [None]
  - Blindness [None]

NARRATIVE: CASE EVENT DATE: 201501
